FAERS Safety Report 14743782 (Version 1)
Quarter: 2018Q2

REPORT INFORMATION
  Report Type: Spontaneous
  Country: CA (occurrence: CA)
  Receive Date: 20180410
  Receipt Date: 20180410
  Transmission Date: 20180711
  Serious: Yes (Death)
  Sender: FDA-Public Use
  Company Number: CA-TEVA-2018-CA-878650

PATIENT
  Age: 36 Year
  Sex: Male
  Weight: 101 kg

DRUGS (3)
  1. HYDROMORPHONE [Suspect]
     Active Substance: HYDROMORPHONE
     Route: 065
  2. COCAINE [Suspect]
     Active Substance: COCAINE
     Route: 065
  3. ALCOHOL. [Suspect]
     Active Substance: ALCOHOL
     Route: 065

REACTIONS (2)
  - Overdose [Fatal]
  - Toxicologic test abnormal [Fatal]
